FAERS Safety Report 10027342 (Version 4)
Quarter: 2015Q2

REPORT INFORMATION
  Report Type: Spontaneous
  Country: US (occurrence: US)
  Receive Date: 20140321
  Receipt Date: 20150617
  Transmission Date: 20150821
  Serious: Yes (Hospitalization, Other)
  Sender: FDA-Public Use
  Company Number: US-SANOFI-AVENTIS-2012SA003099

PATIENT
  Age: 61 Year
  Sex: Male

DRUGS (5)
  1. PLAVIX [Suspect]
     Active Substance: CLOPIDOGREL BISULFATE
     Indication: ACUTE CORONARY SYNDROME
     Dosage: TAKEN OFF DURING SURGERIES
     Route: 048
     Dates: start: 20040721, end: 20091124
  2. PLAVIX [Suspect]
     Active Substance: CLOPIDOGREL BISULFATE
     Indication: PERIPHERAL ARTERIAL OCCLUSIVE DISEASE
     Dosage: TAKEN OFF DURING SURGERIES
     Route: 048
     Dates: start: 20040721, end: 20091124
  3. ASPIRIN. [Suspect]
     Active Substance: ASPIRIN
     Route: 065
  4. PLAVIX [Suspect]
     Active Substance: CLOPIDOGREL BISULFATE
     Indication: INTERMITTENT CLAUDICATION
     Dosage: TAKEN OFF DURING SURGERIES
     Route: 048
     Dates: start: 20040721, end: 20091124
  5. PLAVIX [Suspect]
     Active Substance: CLOPIDOGREL BISULFATE
     Indication: VASCULAR GRAFT
     Dosage: TAKEN OFF DURING SURGERIES
     Route: 048
     Dates: start: 20040721, end: 20091124

REACTIONS (6)
  - Subdural haematoma [Unknown]
  - Confusional state [Unknown]
  - Cerebral haemorrhage [Unknown]
  - Amnesia [Unknown]
  - Impaired work ability [Unknown]
  - Multiple injuries [Unknown]

NARRATIVE: CASE EVENT DATE: 20091124
